FAERS Safety Report 22175049 (Version 1)
Quarter: 2023Q2

REPORT INFORMATION
  Report Type: Spontaneous
  Country: US (occurrence: US)
  Receive Date: 20230405
  Receipt Date: 20230405
  Transmission Date: 20230722
  Serious: Yes (Other)
  Sender: FDA-Public Use
  Company Number: US-JNJFOC-20230373871

PATIENT
  Sex: Female

DRUGS (1)
  1. ELMIRON [Suspect]
     Active Substance: PENTOSAN POLYSULFATE SODIUM
     Indication: Product used for unknown indication
     Dosage: FOR 18 YEARS, DOSAGE WAS 300 MG PER DAY, FOR AN ESTIMATED TOTAL EXPOSURE OF 4381,971 GRAMS
     Route: 048

REACTIONS (1)
  - Maculopathy [Unknown]
